FAERS Safety Report 17949167 (Version 1)
Quarter: 2020Q2

REPORT INFORMATION
  Report Type: Report from Study
  Country: US (occurrence: US)
  Receive Date: 20200626
  Receipt Date: 20200626
  Transmission Date: 20200714
  Serious: Yes (Hospitalization)
  Sender: FDA-Public Use
  Company Number: US-CLOVIS ONCOLOGY-CLO-2020-001160

PATIENT
  Age: 83 Year
  Sex: Female

DRUGS (4)
  1. RUCAPARIB [Suspect]
     Active Substance: RUCAPARIB
     Indication: OVARIAN CANCER
     Dosage: UNK
     Dates: start: 20181231
  2. MIRVETUXIMAB SORAVTANSINE (IV) [Suspect]
     Active Substance: MIRVETUXIMAB SORAVTANSINE
     Indication: OVARIAN CANCER
     Dosage: UNK
     Dates: start: 20181231
  3. RUCAPARIB [Suspect]
     Active Substance: RUCAPARIB
     Indication: MALIGNANT PERITONEAL NEOPLASM
  4. MIRVETUXIMAB SORAVTANSINE (IV) [Suspect]
     Active Substance: MIRVETUXIMAB SORAVTANSINE
     Indication: MALIGNANT PERITONEAL NEOPLASM

REACTIONS (1)
  - Pneumonitis [Not Recovered/Not Resolved]

NARRATIVE: CASE EVENT DATE: 20200609
